FAERS Safety Report 24351326 (Version 1)
Quarter: 2024Q3

REPORT INFORMATION
  Report Type: Spontaneous
  Country: US (occurrence: None)
  Receive Date: 20240920
  Receipt Date: 20240920
  Transmission Date: 20241016
  Serious: Yes (Hospitalization)
  Sender: Public
  Company Number: None

PATIENT
  Sex: Female

DRUGS (2)
  1. TETRABENAZINE [Suspect]
     Active Substance: TETRABENAZINE
     Indication: Oromandibular dystonia
     Dosage: FREQUENCY : TWICE A DAY;?
     Route: 048
     Dates: start: 201704
  2. TETRABENAZINE [Suspect]
     Active Substance: TETRABENAZINE
     Indication: Parkinson^s disease

REACTIONS (6)
  - Pulmonary oedema [None]
  - Swollen tongue [None]
  - Exophthalmos [None]
  - Pruritus [None]
  - Psychomotor hyperactivity [None]
  - Dehydration [None]
